FAERS Safety Report 9909024 (Version 1)
Quarter: 2014Q1

REPORT INFORMATION
  Report Type: Spontaneous
  Country: MX (occurrence: MX)
  Receive Date: 20140219
  Receipt Date: 20140219
  Transmission Date: 20141002
  Serious: Yes (Hospitalization)
  Sender: FDA-Public Use
  Company Number: MX-JNJFOC-20140205902

PATIENT
  Age: 37 Year
  Sex: Female
  Weight: 53 kg

DRUGS (3)
  1. EVRA [Suspect]
     Indication: CONTRACEPTION
     Route: 062
     Dates: start: 20140103
  2. GABAPENTIN [Concomitant]
     Indication: SCIATICA
     Route: 048
     Dates: start: 201310
  3. DEXKETOPROFEN [Concomitant]
     Indication: PAIN
     Route: 065
     Dates: start: 201310

REACTIONS (3)
  - Investigation [Recovered/Resolved]
  - Abdominal pain [Unknown]
  - Metrorrhagia [Unknown]
